FAERS Safety Report 7521838-8 (Version None)
Quarter: 2011Q2

REPORT INFORMATION
  Report Type: 
  Country: None (occurrence: None)
  Receive Date: 20110524
  Receipt Date: 20110516
  Transmission Date: 20111010
  Serious: Yes (Other)
  Sender: FDA-Public Use
  Company Number: 2011SP008654

PATIENT
  Age: 29 Year
  Sex: Female
  Weight: 87.0906 kg

DRUGS (1)
  1. IMPLANON [Suspect]
     Indication: PRODUCT USED FOR UNKNOWN INDICATION
     Dates: start: 20080616, end: 20110223

REACTIONS (2)
  - MENSTRUATION IRREGULAR [None]
  - UTERINE LEIOMYOMA [None]
